FAERS Safety Report 6644679-2 (Version None)
Quarter: 2010Q1

REPORT INFORMATION
  Report Type: 
  Country: None (occurrence: None)
  Receive Date: 20100322
  Receipt Date: 20100315
  Transmission Date: 20100710
  Serious: Yes (Death, Life-Threatening, Hospitalization, Disabling)
  Sender: FDA-Public Use
  Company Number: US-MERCK-1003USA02053

PATIENT
  Age: 15 Year
  Sex: Male

DRUGS (3)
  1. SINGULAIR [Suspect]
     Indication: RHINITIS ALLERGIC
     Route: 048
     Dates: start: 20000101
  2. SINGULAIR [Suspect]
     Route: 048
     Dates: start: 20091107, end: 20091201
  3. SINGULAIR [Suspect]
     Route: 048
     Dates: start: 20100222, end: 20100226

REACTIONS (1)
  - COMPLETED SUICIDE [None]
